FAERS Safety Report 8980007 (Version 1)
Quarter: 2012Q4

REPORT INFORMATION
  Report Type: 
  Country: FI (occurrence: FI)
  Receive Date: 20121221
  Receipt Date: 20121221
  Transmission Date: 20130627
  Serious: Yes (Other)
  Sender: FDA-Public Use
  Company Number: PHHY2012FI116120

PATIENT
  Age: 44 Year
  Sex: Female

DRUGS (2)
  1. LEPONEX [Suspect]
     Dosage: UNK UKN, UNK
     Route: 048
     Dates: end: 201207
  2. LEPONEX [Suspect]
     Dosage: Re-started  after two weeks break
     Route: 048

REACTIONS (2)
  - Catatonia [Unknown]
  - Neutrophil count decreased [Recovered/Resolved]
